FAERS Safety Report 8298238-9 (Version None)
Quarter: 2012Q2

REPORT INFORMATION
  Report Type: 
  Country: None (occurrence: None)
  Receive Date: 20120419
  Receipt Date: 20120306
  Transmission Date: 20120825
  Serious: Yes (Other)
  Sender: FDA-Public Use
  Company Number: US-BRISTOL-MYERS SQUIBB COMPANY-16409922

PATIENT
  Age: 70 Year
  Sex: Male

DRUGS (1)
  1. YERVOY [Suspect]
     Indication: MALIGNANT MELANOMA
     Dosage: LAST DOSE ON 20FEB2012;3MG/KG
     Route: 042
     Dates: start: 20111219

REACTIONS (4)
  - PAIN IN EXTREMITY [None]
  - HYPOTENSION [None]
  - MUSCLE SPASMS [None]
  - DIZZINESS [None]
